FAERS Safety Report 8652182 (Version 4)
Quarter: 2012Q4

REPORT INFORMATION
  Report Type: 
  Country: US (occurrence: US)
  Receive Date: 20120706
  Receipt Date: 20120904
  Transmission Date: 20130627
  Serious: Yes (Other)
  Sender: FDA-Public Use
  Company Number: US-JNJFOC-20120613156

PATIENT
  Age: 61 None
  Sex: Female
  Weight: 74.39 kg

DRUGS (12)
  1. RISPERDAL [Suspect]
     Indication: SCHIZOPHRENIA
     Route: 048
     Dates: start: 2004, end: 2008
  2. RISPERDAL [Suspect]
     Indication: SCHIZOPHRENIA
     Dosage: 1 mg nightly
     Route: 048
     Dates: start: 2008
  3. RISPERDAL [Suspect]
     Indication: BIPOLAR DISORDER
     Route: 048
     Dates: start: 2004, end: 2008
  4. RISPERDAL [Suspect]
     Indication: BIPOLAR DISORDER
     Dosage: 1 mg nightly
     Route: 048
     Dates: start: 2008
  5. RISPERIDONE [Suspect]
     Indication: SCHIZOPHRENIA
     Dosage: 1 mg nightly
     Route: 048
  6. RISPERIDONE [Suspect]
     Indication: BIPOLAR DISORDER
     Dosage: 1 mg nightly
     Route: 048
  7. TESSALON PERLES [Concomitant]
     Indication: COUGH
     Dosage: JAN-2012, NOV-2011 and MAY-2012 (start or stop dates not clarified)
     Route: 048
  8. BENADRYL [Concomitant]
     Indication: COUGH
     Dosage: MAY-2012 (start or stop date not clarified)
     Route: 065
  9. CRESTOR [Concomitant]
     Indication: BLOOD CHOLESTEROL INCREASED
     Dosage: NOV-2011 and MAY-2012 (start or stop dates not clarified)
     Route: 065
     Dates: start: 201111, end: 201205
  10. FLONASE [Concomitant]
     Indication: RHINITIS ALLERGIC
     Dosage: NOV-2011 and MAY-2012 (start or stop dates not clarified)
     Route: 065
  11. AMBIEN [Concomitant]
     Indication: INSOMNIA
     Dosage: NOV-2011 and MAY-2012 (start or stop dates not clarified)
     Route: 065
  12. ATIVAN [Concomitant]
     Indication: PRODUCT USED FOR UNKNOWN INDICATION
     Dosage: NOV-2011 and MAY-2012 (start or stop dates not clarified)
     Route: 065

REACTIONS (6)
  - Interstitial lung disease [Not Recovered/Not Resolved]
  - Bronchitis [Recovered/Resolved]
  - Pneumonia [Recovered/Resolved]
  - Somnolence [Recovered/Resolved]
  - Insomnia [Unknown]
  - Anxiety [Unknown]
